FAERS Safety Report 8250203-3 (Version None)
Quarter: 2012Q2

REPORT INFORMATION
  Report Type: 
  Country: None (occurrence: None)
  Receive Date: 20120402
  Receipt Date: 20120322
  Transmission Date: 20120825
  Serious: Yes (Hospitalization)
  Sender: FDA-Public Use
  Company Number: BR-ASTRAZENECA-2012SE19787

PATIENT
  Age: 70 Year
  Sex: Male
  Weight: 57 kg

DRUGS (6)
  1. OMEPRAZOLE [Suspect]
     Indication: PROPHYLAXIS AGAINST GASTROINTESTINAL ULCER
     Route: 048
     Dates: start: 20091201
  2. SIMVASTATIN [Concomitant]
     Route: 048
     Dates: start: 20091201
  3. MIODARON [Concomitant]
     Route: 048
  4. WARFARIN SODIUM [Concomitant]
     Route: 048
     Dates: start: 20091201
  5. ATACAND [Suspect]
     Indication: HYPERTENSION
     Route: 048
     Dates: start: 20111101
  6. ATACAND [Suspect]
     Route: 048
     Dates: start: 20091101

REACTIONS (5)
  - HYPOTENSION [None]
  - PRURITUS [None]
  - DRUG ADMINISTRATION ERROR [None]
  - ARRHYTHMIA [None]
  - INTENTIONAL DRUG MISUSE [None]
